FAERS Safety Report 9205366 (Version 1)
Quarter: 2013Q2

REPORT INFORMATION
  Report Type: Report from Study
  Country: FR (occurrence: FR)
  Receive Date: 20130402
  Receipt Date: 20130402
  Transmission Date: 20140414
  Serious: Yes (Hospitalization)
  Sender: FDA-Public Use
  Company Number: PHHY2013FR031787

PATIENT
  Sex: Male
  Weight: 85 kg

DRUGS (5)
  1. MYCOPHENOLATE MOFETIL [Suspect]
     Indication: RENAL TRANSPLANT
     Dosage: 3 G, DAILY
     Route: 048
     Dates: start: 20120327
  2. PREDNISONE [Suspect]
     Indication: RENAL TRANSPLANT
     Dosage: 1 DF, DAILY
  3. CERTICAN [Suspect]
     Indication: RENAL TRANSPLANT
     Dosage: 4 MG, QD
     Route: 048
  4. LASILIX [Concomitant]
     Dosage: 2 DF, QD
     Dates: start: 20120330
  5. HUMALOG MIX 50/50 PEN [Concomitant]
     Dosage: 20 IU, QD
     Dates: start: 20120327

REACTIONS (1)
  - Complications of transplanted kidney [Recovered/Resolved]
